FAERS Safety Report 12977756 (Version 1)
Quarter: 2016Q4

REPORT INFORMATION
  Report Type: Spontaneous
  Country: US (occurrence: US)
  Receive Date: 20161128
  Receipt Date: 20161128
  Transmission Date: 20170207
  Serious: Yes (Other)
  Sender: FDA-Public Use
  Company Number: US-GLAXOSMITHKLINE-US2016173900

PATIENT
  Sex: Female

DRUGS (1)
  1. KERI SHEA BUTTER NOURISHING THERAPY SOFTLY SCENTED CUTANEOUS EMULSION [Suspect]
     Active Substance: SHEA BUTTER
     Indication: PRODUCT USED FOR UNKNOWN INDICATION
     Dosage: UNK

REACTIONS (1)
  - Drug dependence [Unknown]
